FAERS Safety Report 14005440 (Version 5)
Quarter: 2018Q1

REPORT INFORMATION
  Report Type: Report from Study
  Country: US (occurrence: US)
  Receive Date: 20170922
  Receipt Date: 20180116
  Transmission Date: 20180508
  Serious: Yes (Other)
  Sender: FDA-Public Use
  Company Number: US-PFIZER INC-2017269143

PATIENT
  Age: 51 Year
  Sex: Female

DRUGS (1)
  1. IBRANCE [Suspect]
     Active Substance: PALBOCICLIB
     Indication: BREAST CANCER FEMALE
     Dosage: 125 MG, 1X/DAY
     Route: 048
     Dates: start: 20170605

REACTIONS (15)
  - Tremor [Unknown]
  - Neoplasm progression [Unknown]
  - Bone marrow failure [Unknown]
  - Ocular hyperaemia [Recovered/Resolved]
  - Dizziness [Recovered/Resolved]
  - Influenza [Unknown]
  - Insomnia [Unknown]
  - White blood cell count decreased [Not Recovered/Not Resolved]
  - Nasal congestion [Unknown]
  - Eye pruritus [Not Recovered/Not Resolved]
  - Eye swelling [Recovered/Resolved]
  - Fatigue [Recovering/Resolving]
  - Therapeutic response unexpected [Unknown]
  - Pre-existing condition improved [Unknown]
  - Balance disorder [Recovered/Resolved]

NARRATIVE: CASE EVENT DATE: 2017
